FAERS Safety Report 8556472-4 (Version None)
Quarter: 2012Q3

REPORT INFORMATION
  Report Type: 
  Country: None (occurrence: None)
  Receive Date: 20120801
  Receipt Date: 20120730
  Transmission Date: 20120928
  Serious: Yes (Hospitalization, Other)
  Sender: FDA-Public Use
  Company Number: PHEH2010US02799

PATIENT
  Sex: Female
  Weight: 96 kg

DRUGS (26)
  1. CHEMOTHERAPEUTICS [Suspect]
  2. NEXIUM [Concomitant]
     Dosage: 40 MG, QD
  3. ZOCOR [Concomitant]
  4. PREDNISONE [Concomitant]
  5. AREDIA [Suspect]
     Indication: BREAST CANCER METASTATIC
     Dosage: 90 MG, QMO
     Route: 042
  6. PAXIL [Concomitant]
     Dosage: 20 MG, QD
  7. ASPIRIN [Concomitant]
  8. IRON [Concomitant]
  9. CLARITIN [Concomitant]
     Dosage: 10 MG, PRN
  10. MORPHINE SULFATE [Concomitant]
  11. ACTOS [Concomitant]
  12. PULMICORT [Concomitant]
  13. PROTONIX [Concomitant]
  14. REMERON [Concomitant]
  15. ANASTROZOLE [Concomitant]
  16. CARISOPRODOL [Concomitant]
  17. FLOVENT [Concomitant]
  18. FLUDROCORTISONE ACETATE [Concomitant]
  19. CARDIZEM [Concomitant]
  20. DARVOCET-N 50 [Concomitant]
     Dosage: 2 DF, PRN
  21. MIDRIN [Concomitant]
  22. LOVENOX [Concomitant]
  23. DURAGESIC-100 [Concomitant]
  24. LIPITOR [Concomitant]
  25. MOTRIN [Concomitant]
  26. DURADRIN [Concomitant]

REACTIONS (68)
  - DEFORMITY [None]
  - MYOCARDIAL INFARCTION [None]
  - DENTAL CARIES [None]
  - HAEMANGIOMA [None]
  - PULMONARY EMBOLISM [None]
  - VENOUS THROMBOSIS LIMB [None]
  - BRONCHITIS [None]
  - DEPRESSION [None]
  - ABDOMINAL TENDERNESS [None]
  - DIABETES MELLITUS [None]
  - EMPHYSEMA [None]
  - CHRONIC OBSTRUCTIVE PULMONARY DISEASE [None]
  - MIGRAINE [None]
  - HYDRONEPHROSIS [None]
  - HAEMATURIA [None]
  - DYSPHAGIA [None]
  - ERYTHEMA [None]
  - LIPIDS INCREASED [None]
  - LEUKOCYTOSIS [None]
  - DYSPNOEA [None]
  - MUSCULOSKELETAL STIFFNESS [None]
  - PREAURICULAR CYST [None]
  - INFECTION [None]
  - METASTASES TO BONE [None]
  - HEADACHE [None]
  - ABDOMINAL PAIN [None]
  - OSTEOARTHRITIS [None]
  - BRONCHOSPASM [None]
  - OESOPHAGITIS [None]
  - SEBORRHOEIC KERATOSIS [None]
  - MELANOCYTIC NAEVUS [None]
  - HYPERTENSION [None]
  - HYDROCHOLECYSTIS [None]
  - ABDOMINAL RIGIDITY [None]
  - SINUS TACHYCARDIA [None]
  - PAIN [None]
  - CARDIAC DISORDER [None]
  - MUSCULOSKELETAL CHEST PAIN [None]
  - HYPOTENSION [None]
  - OSTEONECROSIS OF JAW [None]
  - INJURY [None]
  - SINUSITIS [None]
  - OSTEOMYELITIS [None]
  - ANGIOMYOLIPOMA [None]
  - GASTROOESOPHAGEAL REFLUX DISEASE [None]
  - EXPOSED BONE IN JAW [None]
  - OSTEOPOROSIS [None]
  - CHOLELITHIASIS [None]
  - WOUND [None]
  - ASTHMA [None]
  - ARTERIOSCLEROSIS [None]
  - DIVERTICULUM [None]
  - RHINITIS [None]
  - GALLBLADDER POLYP [None]
  - CORONARY ARTERY DISEASE [None]
  - JOINT ANKYLOSIS [None]
  - SWELLING [None]
  - ARRHYTHMIA [None]
  - PNEUMONIA [None]
  - BACK PAIN [None]
  - PECTUS EXCAVATUM [None]
  - INTERVERTEBRAL DISC DEGENERATION [None]
  - BLOOD CHOLESTEROL INCREASED [None]
  - ANGINA PECTORIS [None]
  - EAR PAIN [None]
  - ADENOCARCINOMA [None]
  - LUNG NEOPLASM MALIGNANT [None]
  - CHOLECYSTITIS [None]
